FAERS Safety Report 8002082-7 (Version None)
Quarter: 2011Q4

REPORT INFORMATION
  Report Type: 
  Country: None (occurrence: None)
  Receive Date: 20111222
  Receipt Date: 20111208
  Transmission Date: 20120403
  Serious: Yes (Other)
  Sender: FDA-Public Use
  Company Number: GB-WATSON-2011-21329

PATIENT
  Age: 43 Year
  Sex: Female

DRUGS (3)
  1. FUSIDIC ACID [Concomitant]
     Indication: PRODUCT USED FOR UNKNOWN INDICATION
  2. ACYCLOVIR [Concomitant]
     Indication: PRODUCT USED FOR UNKNOWN INDICATION
     Dosage: UNK
  3. CABERGOLINE [Suspect]
     Indication: PROLACTINOMA
     Dosage: 500 UG, 1/WEEK
     Route: 048
     Dates: start: 19980101

REACTIONS (2)
  - NEUTROPENIA [None]
  - RENAL FAILURE CHRONIC [None]
